FAERS Safety Report 9709309 (Version 5)
Quarter: 2014Q1

REPORT INFORMATION
  Report Type: Report from Study
  Country: JP (occurrence: JP)
  Receive Date: 20131125
  Receipt Date: 20140313
  Transmission Date: 20141002
  Serious: Yes (Other)
  Sender: FDA-Public Use
  Company Number: JP-009507513-1311JPN008861

PATIENT
  Age: 30 Year
  Sex: Female
  Weight: 50.85 kg

DRUGS (10)
  1. GASTER D [Suspect]
     Indication: PROPHYLAXIS
     Dosage: 20 MG DAILY
     Route: 048
     Dates: end: 20130108
  2. GASTER D [Suspect]
     Dosage: 20 MG, QD
     Route: 048
     Dates: start: 20130731
  3. PROGRAF [Suspect]
     Indication: LUPUS NEPHRITIS
     Dosage: 3 MG UNKNOWN/D
     Route: 048
     Dates: start: 20081031, end: 20091217
  4. PROGRAF [Suspect]
     Dosage: 2.5 MG UNKNOWN/D
     Route: 048
     Dates: start: 20091218, end: 20100114
  5. PROGRAF [Suspect]
     Dosage: 2 MG UNKNOWN/D
     Route: 048
     Dates: start: 20100115, end: 20110324
  6. PROGRAF [Suspect]
     Dosage: 3 MG UID/QD
     Route: 048
     Dates: start: 20110325
  7. PREDNISOLONE [Concomitant]
     Dosage: UNK
     Route: 048
  8. BENET [Concomitant]
     Dosage: UNK
     Route: 048
     Dates: end: 20120516
  9. PERSANTIN L [Concomitant]
     Dosage: UNK
     Route: 048
     Dates: end: 20121219
  10. LIPITOR [Concomitant]
     Dosage: UNK
     Route: 048
     Dates: start: 20090105, end: 20090625

REACTIONS (5)
  - Pre-eclampsia [Recovering/Resolving]
  - Placental insufficiency [Recovered/Resolved]
  - Premature labour [Unknown]
  - Off label use [Unknown]
  - Exposure during pregnancy [Recovered/Resolved]
